FAERS Safety Report 9656760 (Version 3)
Quarter: 2013Q4

REPORT INFORMATION
  Report Type: Spontaneous
  Country: GB (occurrence: None)
  Receive Date: 20131016
  Receipt Date: 20131021
  Transmission Date: 20140711
  Serious: Yes (Other)
  Sender: FDA-Public Use
  Company Number: 2013038345

PATIENT
  Age: 30 Year
  Sex: Female

DRUGS (15)
  1. HIZENTRA [Suspect]
     Indication: IMMUNODEFICIENCY
     Dosage: 4 G, 20 ML (4 G); X 2 VIALS
     Dates: start: 20130926
  2. CALCICHEW [Concomitant]
  3. FOSAMAX [Concomitant]
  4. PREDNISOLONE [Concomitant]
  5. SALBUTAMOL [Concomitant]
  6. OMEPRAZOLE [Concomitant]
  7. SPIRIVA (TIOTROPIUM BROMIDE) (TIOTROPIUM BROMIDE) [Concomitant]
  8. SERETIDE [Concomitant]
  9. FLUTICASONE (FLUTICASONE) [Concomitant]
  10. MONTELUKAST (MONTELUKAST) [Concomitant]
  11. GALENIC /PARACETAMOL/CODEINE [Concomitant]
  12. FLUOXETINE (FLUOXETINE) [Concomitant]
  13. AMITRIPTYLINE [Concomitant]
  14. AMOXICILLIN [Concomitant]
  15. AZITHROMYCIN (AZITHROMYCIN) [Concomitant]

REACTIONS (10)
  - Pharyngeal oedema [None]
  - Hypersensitivity [None]
  - Syncope [None]
  - Flushing [None]
  - Dizziness [None]
  - Vertigo [None]
  - Cough [None]
  - Dyspnoea [None]
  - Wheezing [None]
  - Oropharyngeal pain [None]
